FAERS Safety Report 6414174-4 (Version None)
Quarter: 2009Q4

REPORT INFORMATION
  Report Type: 
  Country: None (occurrence: None)
  Receive Date: 20091026
  Receipt Date: 20091014
  Transmission Date: 20100525
  Serious: Yes (Other)
  Sender: FDA-Public Use
  Company Number: DE-PFIZER INC-2009282977

PATIENT
  Age: 82 Year

DRUGS (5)
  1. ZYVOXID [Suspect]
     Indication: ENDOCARDITIS
     Dosage: 600 MG, 2X/DAY
     Route: 048
     Dates: start: 20090930, end: 20091014
  2. ZYVOXID [Suspect]
     Indication: PYREXIA
  3. HEPARIN SODIUM [Suspect]
     Indication: THROMBOSIS PROPHYLAXIS
     Dosage: UNK
     Dates: end: 20091013
  4. FORTUM [Suspect]
     Indication: ENDOCARDITIS
     Dosage: UNK
  5. FORTUM [Suspect]
     Indication: PYREXIA

REACTIONS (2)
  - CONFUSIONAL STATE [None]
  - THROMBOCYTOPENIA [None]
